APPROVED DRUG PRODUCT: VIRAZOLE
Active Ingredient: RIBAVIRIN
Strength: 6GM/VIAL
Dosage Form/Route: FOR SOLUTION;INHALATION
Application: N018859 | Product #001
Applicant: BAUSCH HEALTH US LLC
Approved: Dec 31, 1985 | RLD: Yes | RS: No | Type: DISCN